FAERS Safety Report 19809752 (Version 1)
Quarter: 2021Q3

REPORT INFORMATION
  Report Type: Spontaneous
  Country: US (occurrence: US)
  Receive Date: 20210903
  Receipt Date: 20210903
  Transmission Date: 20211014
  Serious: No
  Sender: FDA-Public Use
  Company Number: None

PATIENT
  Age: 27 Year
  Sex: Male
  Weight: 154.22 kg

DRUGS (1)
  1. CAPECITABINE 500 MG TABLET, 500 MG [Suspect]
     Active Substance: CAPECITABINE
     Indication: RECTAL CANCER
     Dosage: ?          OTHER FREQUENCY:4 DAILY MONDAY?FRI;?
     Route: 048
     Dates: start: 202012

REACTIONS (2)
  - Therapy interrupted [None]
  - COVID-19 [None]
